FAERS Safety Report 24765973 (Version 1)
Quarter: 2024Q4

REPORT INFORMATION
  Report Type: Spontaneous
  Country: US (occurrence: US)
  Receive Date: 20241223
  Receipt Date: 20241223
  Transmission Date: 20250115
  Serious: No
  Sender: SUNOVION
  Company Number: US-SMPA-2024SPA005794AA

PATIENT

DRUGS (2)
  1. ORGOVYX [Suspect]
     Active Substance: RELUGOLIX
     Indication: Prostate cancer
     Dosage: UNK
     Route: 048
     Dates: start: 20240830, end: 20240831
  2. ORGOVYX [Suspect]
     Active Substance: RELUGOLIX
     Dosage: 120 MG, QD (TAKE ONE TABLET BY MOUTH ONCE DAILY AROUND THE SAME TIME)
     Route: 048
     Dates: start: 20240830

REACTIONS (4)
  - Fall [Unknown]
  - Alopecia [Unknown]
  - Dizziness [Unknown]
  - Hot flush [Recovering/Resolving]
